FAERS Safety Report 5871074-6 (Version None)
Quarter: 2008Q3

REPORT INFORMATION
  Report Type: 
  Country: None (occurrence: None)
  Receive Date: 20080904
  Receipt Date: 20080815
  Transmission Date: 20090109
  Serious: Yes (Other)
  Sender: FDA-Public Use
  Company Number: BE-PFIZER INC-2008072863

PATIENT
  Age: 12 Month

DRUGS (2)
  1. LIPITOR [Suspect]
     Route: 048
  2. EZETROL [Suspect]
     Route: 048

REACTIONS (1)
  - HEPATITIS FULMINANT [None]
